APPROVED DRUG PRODUCT: SOTALOL HYDROCHLORIDE
Active Ingredient: SOTALOL HYDROCHLORIDE
Strength: 240MG
Dosage Form/Route: TABLET;ORAL
Application: A076140 | Product #004 | TE Code: AB
Applicant: APOTEX INC
Approved: Sep 26, 2002 | RLD: No | RS: No | Type: RX